FAERS Safety Report 6712400-5 (Version None)
Quarter: 2010Q2

REPORT INFORMATION
  Report Type: 
  Country: None (occurrence: None)
  Receive Date: 20100505
  Receipt Date: 20100427
  Transmission Date: 20101027
  Serious: Yes (Other)
  Sender: FDA-Public Use
  Company Number: US-AMGEN-QUU406173

PATIENT
  Sex: Female
  Weight: 74.5 kg

DRUGS (10)
  1. NPLATE [Suspect]
     Indication: IDIOPATHIC THROMBOCYTOPENIC PURPURA
     Route: 058
     Dates: start: 20080918, end: 20100312
  2. CORTICOSTEROIDS [Concomitant]
     Dates: start: 20080621
  3. DANAZOL [Concomitant]
     Dates: start: 20080731
  4. CELLCEPT [Concomitant]
  5. PREDNISONE [Concomitant]
     Dates: start: 20080612
  6. VITAMIN B-12 [Concomitant]
     Dates: start: 20090710
  7. LABETALOL HCL [Concomitant]
  8. LANSOPRAZOLE [Concomitant]
  9. AMLODIPINE [Concomitant]
  10. UNSPECIFIED MEDICATION [Concomitant]

REACTIONS (1)
  - RED BLOOD CELL SCHISTOCYTES PRESENT [None]
